FAERS Safety Report 9640705 (Version 2)
Quarter: 2013Q4

REPORT INFORMATION
  Report Type: Report from Study
  Country: US (occurrence: US)
  Receive Date: 20131023
  Receipt Date: 20131023
  Transmission Date: 20140711
  Serious: No
  Sender: FDA-Public Use
  Company Number: US-ABBVIE-13P-163-1071491-00

PATIENT
  Age: 38 Year
  Sex: Female

DRUGS (3)
  1. LUPRON DEPOT [Suspect]
     Indication: ENDOMETRIOSIS
     Dates: start: 20130104, end: 20130305
  2. MELATONIN [Concomitant]
     Indication: PRODUCT USED FOR UNKNOWN INDICATION
  3. FISH OIL [Concomitant]

REACTIONS (5)
  - Night sweats [Recovered/Resolved]
  - Hot flush [Recovered/Resolved]
  - Flushing [Not Recovered/Not Resolved]
  - Insomnia [Recovered/Resolved]
  - Metrorrhagia [Not Recovered/Not Resolved]
